FAERS Safety Report 12933889 (Version 2)
Quarter: 2016Q4

REPORT INFORMATION
  Report Type: Report from Study
  Country: US (occurrence: US)
  Receive Date: 20161111
  Receipt Date: 20161124
  Transmission Date: 20170207
  Serious: Yes (Death)
  Sender: FDA-Public Use
  Company Number: US-B.I. PHARMACEUTICALS,INC./RIDGEFIELD-2016-BI-075131

PATIENT
  Sex: Male

DRUGS (2)
  1. GILOTRIF [Suspect]
     Active Substance: AFATINIB
     Indication: METASTASES TO LUNG
  2. GILOTRIF [Suspect]
     Active Substance: AFATINIB
     Indication: COLON CANCER
     Route: 048
     Dates: start: 20161012

REACTIONS (2)
  - Colon cancer [Fatal]
  - Metastases to lung [Fatal]
